FAERS Safety Report 7222158-1 (Version None)
Quarter: 2011Q1

REPORT INFORMATION
  Report Type: 
  Country: None (occurrence: None)
  Receive Date: 20110112
  Receipt Date: 20101231
  Transmission Date: 20110831
  Serious: Yes (Hospitalization, Other)
  Sender: FDA-Public Use
  Company Number: PHEH2010US03420

PATIENT
  Sex: Female
  Weight: 78.458 kg

DRUGS (46)
  1. EFFEXOR [Concomitant]
  2. NAXIDIN [Concomitant]
  3. LASIX [Concomitant]
  4. DIOVAN [Concomitant]
  5. ULTRACET [Concomitant]
     Dosage: 4-8 PER DAY
  6. PROZAC [Concomitant]
     Dosage: 1 DF, PRN
  7. AREDIA [Suspect]
     Indication: BREAST CANCER METASTATIC
     Dosage: 90 MG PER MONTH
     Route: 042
     Dates: start: 20030101
  8. BELLERGAL [Concomitant]
     Dosage: 1 DF, QD
     Route: 048
  9. PREDNISONE [Concomitant]
     Dosage: 80 MG, QD
  10. MORPHINE [Concomitant]
  11. FENTANYL [Concomitant]
  12. DILAUDID [Concomitant]
  13. CLEOCIN [Concomitant]
  14. PROTONIX [Concomitant]
  15. SENOKOT                                 /UNK/ [Concomitant]
     Indication: CONSTIPATION
  16. ADVIL [Concomitant]
  17. PROVENTIL [Concomitant]
  18. MAXZIDE [Concomitant]
     Dosage: 25 MG DAILY
  19. SCOPOLAMINE [Concomitant]
     Dosage: 105 MG EVERY 72 HRS
  20. ACEPHEN [Concomitant]
     Dosage: 1 DF, QD
  21. PHENERGAN [Concomitant]
  22. ANTACIDS [Concomitant]
  23. LOTENSIN [Concomitant]
     Route: 048
  24. WELLBUTRIN [Concomitant]
     Dosage: 150 MG, BID
     Route: 048
  25. CALCIUM WITH VITAMIN D [Concomitant]
  26. OXYCODONE [Concomitant]
  27. OXYCONTIN [Concomitant]
     Dosage: 80 MG, PRN
  28. CLONIDINE [Concomitant]
  29. SOMA [Concomitant]
     Indication: MUSCLE SPASMS
     Dosage: 350 MG, TID
     Route: 048
  30. ASMANEX TWISTHALER [Concomitant]
  31. FIBERCON (POLYCARBOPHIL CALCIUM) [Concomitant]
  32. AREDIA [Suspect]
     Indication: METASTASES TO BONE
  33. ADVAIR [Concomitant]
  34. PAXIL [Concomitant]
  35. VICODIN [Concomitant]
     Dosage: 1 DF, PRN
  36. DURAGESIC-50 [Concomitant]
     Dosage: 2 MG, PRN
  37. PHENERGAN [Concomitant]
     Dosage: 50 MG, BID
  38. LEXAPRO [Concomitant]
  39. ASPIRIN [Concomitant]
  40. ZOMETA [Suspect]
     Indication: BREAST CANCER METASTATIC
  41. ARIMIDEX [Concomitant]
     Indication: BREAST CANCER
     Dosage: 1 DF, QD
     Route: 048
  42. CLINDAMYCIN [Concomitant]
  43. ADRIAMYCIN PFS [Concomitant]
  44. CYTOXAN [Concomitant]
  45. PRILOSEC [Concomitant]
     Dosage: UNK
     Route: 048
  46. PREVACID [Concomitant]

REACTIONS (57)
  - PAIN [None]
  - ORAL PAIN [None]
  - METASTASES TO BONE [None]
  - BRONCHITIS [None]
  - LUNG NEOPLASM [None]
  - LIPOMA [None]
  - DEVICE RELATED INFECTION [None]
  - DISABILITY [None]
  - GINGIVAL OEDEMA [None]
  - SPINAL FRACTURE [None]
  - FALL [None]
  - INJURY [None]
  - TOOTH FRACTURE [None]
  - GINGIVAL EROSION [None]
  - TOOTH DEPOSIT [None]
  - BACK PAIN [None]
  - CHEST PAIN [None]
  - SCOLIOSIS [None]
  - DYSGEUSIA [None]
  - RENAL CYST [None]
  - KYPHOSIS [None]
  - ANHEDONIA [None]
  - TOOTH ABSCESS [None]
  - OSTEOARTHRITIS [None]
  - HYDRONEPHROSIS [None]
  - BONE DISORDER [None]
  - BREATHING-RELATED SLEEP DISORDER [None]
  - ILEUS [None]
  - ANXIETY [None]
  - ARTHRITIS [None]
  - ROAD TRAFFIC ACCIDENT [None]
  - INFECTION [None]
  - RENAL DISORDER [None]
  - IRON DEFICIENCY ANAEMIA [None]
  - BRUXISM [None]
  - BLADDER NEOPLASM [None]
  - OSTEONECROSIS [None]
  - BONE PAIN [None]
  - WHEELCHAIR USER [None]
  - EMPHYSEMA [None]
  - DIVERTICULUM [None]
  - MENISCUS LESION [None]
  - DENTAL CARIES [None]
  - PERIODONTAL DISEASE [None]
  - DENTAL PLAQUE [None]
  - BONE LESION [None]
  - RIB FRACTURE [None]
  - PELVI-URETERIC OBSTRUCTION [None]
  - HIATUS HERNIA [None]
  - HOT FLUSH [None]
  - DIPLOPIA [None]
  - OSTEONECROSIS OF JAW [None]
  - GAIT DISTURBANCE [None]
  - STAPHYLOCOCCAL INFECTION [None]
  - BREAST CANCER RECURRENT [None]
  - HAEMATURIA [None]
  - URINARY TRACT INFECTION [None]
